FAERS Safety Report 9404949 (Version 1)
Quarter: 2013Q3

REPORT INFORMATION
  Report Type: Spontaneous
  Country: US (occurrence: US)
  Receive Date: 20130717
  Receipt Date: 20130717
  Transmission Date: 20140515
  Serious: No
  Sender: FDA-Public Use
  Company Number: US-BRISTOL-MYERS SQUIBB COMPANY-19014000

PATIENT
  Sex: Male

DRUGS (2)
  1. YERVOY [Suspect]
  2. PREDNISONE [Concomitant]

REACTIONS (2)
  - Pyrexia [Unknown]
  - Rash generalised [Unknown]
